FAERS Safety Report 6207539-7 (Version None)
Quarter: 2009Q2

REPORT INFORMATION
  Report Type: 
  Country: None (occurrence: None)
  Receive Date: 20090526
  Receipt Date: 20090312
  Transmission Date: 20091009
  Serious: Yes (Hospitalization)
  Sender: FDA-Public Use
  Company Number: 09P-229-0496953-00

PATIENT
  Age: 5 Month
  Sex: Male
  Weight: 5.67 kg

DRUGS (3)
  1. SYNAGIS [Suspect]
     Indication: ANTIVIRAL PROPHYLAXIS
     Dates: start: 20081126, end: 20081126
  2. SYNAGIS [Suspect]
     Indication: ATRIAL SEPTAL DEFECT
     Dates: start: 20081126, end: 20081126
  3. SYNAGIS [Suspect]
     Indication: VENTRICULAR SEPTAL DEFECT
     Dates: start: 20081126, end: 20081126

REACTIONS (3)
  - BRONCHIOLITIS [None]
  - PNEUMONIA [None]
  - RESPIRATORY SYNCYTIAL VIRUS INFECTION [None]
